FAERS Safety Report 13104822 (Version 6)
Quarter: 2020Q3

REPORT INFORMATION
  Report Type: Spontaneous
  Country: US (occurrence: US)
  Receive Date: 20170111
  Receipt Date: 20200924
  Transmission Date: 20201102
  Serious: No
  Sender: FDA-Public Use
  Company Number: US-PFIZER INC-2017009834

PATIENT
  Age: 6 Month
  Sex: Male

DRUGS (7)
  1. GENOTROPIN [Suspect]
     Active Substance: SOMATROPIN
     Dosage: 0.4 MG, 1X/DAY (EVERY NIGHT)
  2. GENOTROPIN [Suspect]
     Active Substance: SOMATROPIN
     Dosage: UNK
  3. MTV [Concomitant]
     Dosage: UNK
  4. LAMITOR [Concomitant]
     Active Substance: LAMOTRIGINE
     Dosage: 200 MG, 2X/DAY
  5. GENOTROPIN [Suspect]
     Active Substance: SOMATROPIN
     Indication: PRADER-WILLI SYNDROME
     Dosage: 0.3 MG, ONCE A DAY
     Route: 058
     Dates: start: 20161221
  6. GENOTROPIN [Suspect]
     Active Substance: SOMATROPIN
     Dosage: 0.4 MG, DAILY (NIGHTLY)
     Route: 058
     Dates: start: 201612
  7. CARNITOR [Concomitant]
     Active Substance: LEVOCARNITINE
     Dosage: UNK

REACTIONS (5)
  - Product dose omission issue [Unknown]
  - Device use issue [Unknown]
  - Scoliosis [Not Recovered/Not Resolved]
  - Condition aggravated [Not Recovered/Not Resolved]
  - Device dispensing error [Unknown]

NARRATIVE: CASE EVENT DATE: 201701
